FAERS Safety Report 24248680 (Version 1)
Quarter: 2024Q3

REPORT INFORMATION
  Report Type: Spontaneous
  Country: US (occurrence: None)
  Receive Date: 20240823
  Receipt Date: 20240823
  Transmission Date: 20241017
  Serious: Yes (Other)
  Sender: Public
  Company Number: None

PATIENT
  Age: 49 Year
  Sex: Female

DRUGS (1)
  1. AVSOLA [Suspect]
     Active Substance: INFLIXIMAB-AXXQ
     Indication: Ankylosing spondylitis
     Dosage: 5MG/KG  AT WEEKS 2,6 AND EVERY 6 WEEKS THEREAFTER

REACTIONS (3)
  - Pruritus [None]
  - Palpitations [None]
  - Infusion related reaction [None]
